FAERS Safety Report 21314715 (Version 1)
Quarter: 2022Q3

REPORT INFORMATION
  Report Type: Spontaneous
  Country: US (occurrence: None)
  Receive Date: 20220909
  Receipt Date: 20220909
  Transmission Date: 20221027
  Serious: No
  Sender: FDA-Public Use
  Company Number: US-ARIS GLOBAL-202110-1954

PATIENT
  Age: 59 Year
  Sex: Male

DRUGS (5)
  1. OXERVATE [Suspect]
     Active Substance: CENEGERMIN-BKBJ
     Indication: Neurotrophic keratopathy
     Route: 047
     Dates: start: 20211019
  2. FLUOROMETHOLONE [Concomitant]
     Active Substance: FLUOROMETHOLONE
  3. FISH OIL [Concomitant]
     Active Substance: FISH OIL
  4. LYSINE [Concomitant]
     Active Substance: LYSINE
  5. ASPIRIN [Concomitant]
     Active Substance: ASPIRIN

REACTIONS (3)
  - Eye pain [Unknown]
  - Eye swelling [Unknown]
  - Dry eye [Unknown]

NARRATIVE: CASE EVENT DATE: 20211021
